FAERS Safety Report 22107850 (Version 1)
Quarter: 2023Q1

REPORT INFORMATION
  Report Type: Spontaneous
  Country: GB (occurrence: GB)
  Receive Date: 20230317
  Receipt Date: 20230317
  Transmission Date: 20230418
  Serious: Yes (Other)
  Sender: FDA-Public Use
  Company Number: GB-002147023-NVSC2023GB055926

PATIENT
  Sex: Male
  Weight: 13 kg

DRUGS (12)
  1. ZOLGENSMA [Suspect]
     Active Substance: ONASEMNOGENE ABEPARVOVEC-XIOI
     Indication: Spinal muscular atrophy
     Dosage: UNK
     Route: 065
     Dates: start: 20210331, end: 20210331
  2. NUSINERSEN [Suspect]
     Active Substance: NUSINERSEN
     Indication: Spinal muscular atrophy
     Dosage: 12 MG (LOADING DOSES THEN 4 MONTHLY)
     Route: 037
     Dates: start: 20200204
  3. NUSINERSEN [Suspect]
     Active Substance: NUSINERSEN
     Dosage: UNK
     Route: 065
     Dates: start: 20201201
  4. NUSINERSEN [Suspect]
     Active Substance: NUSINERSEN
     Dosage: UNK
     Route: 065
     Dates: start: 20210706
  5. NUSINERSEN [Suspect]
     Active Substance: NUSINERSEN
     Dosage: UNK
     Route: 065
     Dates: start: 20210803
  6. NUSINERSEN [Suspect]
     Active Substance: NUSINERSEN
     Dosage: UNK
     Route: 065
     Dates: start: 20211207
  7. PREDNISOLONE [Concomitant]
     Active Substance: PREDNISOLONE
     Indication: Product used for unknown indication
     Dosage: UNK (POST ZOLGENSMA)
     Route: 065
     Dates: start: 20210330, end: 20210615
  8. COLOMYCIN [Concomitant]
     Indication: Pseudomonas infection
     Dosage: UNK
     Route: 065
  9. VITAMIN D [Concomitant]
     Active Substance: VITAMIN D NOS
     Indication: Product used for unknown indication
     Dosage: UNK (SUBSTANCES)
     Route: 065
  10. DIETARY SUPPLEMENT [Concomitant]
     Active Substance: DIETARY SUPPLEMENT
     Indication: Product used for unknown indication
     Dosage: UNK (JR FEEDS)
     Route: 065
  11. OMEGA 3 [Concomitant]
     Active Substance: CAPSAICIN
     Indication: Product used for unknown indication
     Dosage: UNK
     Route: 065
  12. VITAMINS [Concomitant]
     Active Substance: VITAMINS
     Indication: Product used for unknown indication
     Dosage: UNK
     Route: 065

REACTIONS (2)
  - Nephrolithiasis [Not Recovered/Not Resolved]
  - Hydronephrosis [Not Recovered/Not Resolved]

NARRATIVE: CASE EVENT DATE: 20220601
